FAERS Safety Report 10025437 (Version 1)
Quarter: 2014Q1

REPORT INFORMATION
  Report Type: Spontaneous
  Country: US (occurrence: None)
  Receive Date: 20140319
  Receipt Date: 20140319
  Transmission Date: 20141002
  Serious: Yes (Hospitalization)
  Sender: FDA-Public Use
  Company Number: None

PATIENT
  Age: 91 Year
  Sex: Male
  Weight: 75.5 kg

DRUGS (1)
  1. GEMFIBROZIL [Suspect]
     Indication: HYPERTRIGLYCERIDAEMIA
     Route: 048
     Dates: start: 20140221, end: 20140310

REACTIONS (4)
  - Sedation [None]
  - Asthenia [None]
  - Rhabdomyolysis [None]
  - Fall [None]
